FAERS Safety Report 9652523 (Version 1)
Quarter: 2013Q4

REPORT INFORMATION
  Report Type: Spontaneous
  Country: US (occurrence: US)
  Receive Date: 20131029
  Receipt Date: 20131029
  Transmission Date: 20140711
  Serious: Yes (Hospitalization)
  Sender: FDA-Public Use
  Company Number: US-BAYER-2013-130010

PATIENT
  Age: 67 Year
  Sex: Male

DRUGS (6)
  1. ACETYLSALICYLIC ACID({=100 MG) [Suspect]
     Indication: CARDIOVASCULAR EVENT PROPHYLAXIS
     Dosage: 81 MG, QD
  2. DABIGATRAN [Suspect]
     Dosage: 150 MG, BID
  3. WARFARIN [Interacting]
  4. SOTALOL [Concomitant]
  5. LISINOPRIL [Concomitant]
  6. OMEPRAZOLE [Concomitant]

REACTIONS (5)
  - Toxic neuropathy [Recovering/Resolving]
  - Renal tubular necrosis [Recovering/Resolving]
  - Haematuria [Recovered/Resolved]
  - Renal failure acute [Recovered/Resolved]
  - Labelled drug-drug interaction medication error [None]
